FAERS Safety Report 9676239 (Version 1)
Quarter: 2013Q4

REPORT INFORMATION
  Report Type: Spontaneous
  Country: US (occurrence: None)
  Receive Date: 20131105
  Receipt Date: 20131105
  Transmission Date: 20140711
  Serious: Yes (Hospitalization)
  Sender: FDA-Public Use
  Company Number: 2013AP009311

PATIENT
  Age: 16 Year
  Sex: Female

DRUGS (4)
  1. ESCITALOPRAM OXALATE [Suspect]
     Route: 048
  2. PARACETAMOL W/TRAMADOL HYDROCHLORIDE [Suspect]
     Route: 048
  3. ACETAMINOPHEN\HYDROCODONE [Suspect]
     Route: 048
  4. ACETAMINOPHEN W/ HYDROCODONE [Concomitant]

REACTIONS (4)
  - QRS axis abnormal [None]
  - Electrocardiogram QT prolonged [None]
  - Bundle branch block right [None]
  - Overdose [None]
